FAERS Safety Report 8137519-6 (Version None)
Quarter: 2012Q1

REPORT INFORMATION
  Report Type: 
  Country: None (occurrence: None)
  Receive Date: 20120103
  Receipt Date: 20110907
  Transmission Date: 20120608
  Serious: No
  Sender: FDA-Public Use
  Company Number: AE-2011-001383

PATIENT
  Age: 48 Year
  Sex: Female
  Weight: 60.782 kg

DRUGS (11)
  1. XANAX [Concomitant]
  2. RIBAVIRIN [Concomitant]
  3. LASIX (LASIX) [Concomitant]
  4. SPIRONOLACTONE [Concomitant]
  5. PHENERGAN HCL [Concomitant]
  6. PEGINTERFERON (PEGINTERFERON ALFA-2A) [Concomitant]
  7. PRILOSEC [Concomitant]
  8. WELLBUTRIN [Concomitant]
  9. ENALAPRIL MALEATE [Concomitant]
  10. INCIVEK [Suspect]
     Dosage: 2250 MG (1125 MG, 2 IN 1 D), ORAL
     Route: 048
     Dates: start: 20110901
  11. LACTULOSE [Concomitant]

REACTIONS (3)
  - PRURITUS [None]
  - INJECTION SITE ERYTHEMA [None]
  - DECREASED APPETITE [None]
